FAERS Safety Report 7033761-6 (Version None)
Quarter: 2010Q4

REPORT INFORMATION
  Report Type: 
  Country: None (occurrence: None)
  Receive Date: 20101007
  Receipt Date: 20100927
  Transmission Date: 20110411
  Serious: Yes (Hospitalization, Other)
  Sender: FDA-Public Use
  Company Number: PHHY2010US36345

PATIENT
  Sex: Female

DRUGS (13)
  1. EXTAVIA [Suspect]
     Indication: MULTIPLE SCLEROSIS
     Dosage: 0.25 MG, QOD
     Route: 058
     Dates: start: 20100212
  2. PRILOSEC [Concomitant]
     Dosage: 10 MG, QD
  3. LOVAZA [Concomitant]
     Dosage: 1 DF, QD
  4. PRINIVIL [Concomitant]
     Dosage: 20 MG, BID
  5. NORVASC [Concomitant]
     Dosage: 10 MG, QD
  6. FOLTRIN [Concomitant]
     Dosage: 1 DF, BID
  7. FOSAMAX [Concomitant]
     Dosage: 70 MG, ONCE A WEEK
  8. CALCIUM WITH VITAMIN D [Concomitant]
     Dosage: 600/400, 2 DF, QD
  9. COLACE [Concomitant]
     Dosage: 1 MG, BID
  10. LOVASTATIN [Concomitant]
     Dosage: 1 DF, QHS
  11. PERCOCET [Concomitant]
     Dosage: 5/325, 1-2 DF PRN
  12. SENOKOT [Concomitant]
     Dosage: 2 DF, QHS
  13. OXYCONTIN [Concomitant]
     Dosage: 10 MG, PRN

REACTIONS (8)
  - ARTHRALGIA [None]
  - FALL [None]
  - MUSCULAR WEAKNESS [None]
  - PELVIC FRACTURE [None]
  - RASH MACULAR [None]
  - SENSORY LOSS [None]
  - SKIN DISCOLOURATION [None]
  - SURGERY [None]
